FAERS Safety Report 8822280 (Version 1)
Quarter: 2012Q4

REPORT INFORMATION
  Report Type: 
  Country: FR (occurrence: FR)
  Receive Date: 20121003
  Receipt Date: 20121003
  Transmission Date: 20130627
  Serious: Yes (Hospitalization, Other)
  Sender: FDA-Public Use
  Company Number: PHHY2012FR084371

PATIENT
  Age: 61 Year
  Sex: Female

DRUGS (13)
  1. LOXEN [Suspect]
     Dosage: 50 mg, UNK
     Dates: end: 201107
  2. VALSARTAN [Suspect]
     Dosage: 80 mg, BID
     Dates: end: 201107
  3. PREVISCAN [Suspect]
     Dosage: 0.75 DF, daily
     Dates: end: 201107
  4. NEXIUM [Suspect]
     Dates: end: 201107
  5. ATARAX [Suspect]
     Dates: end: 201107
  6. ATARAX [Suspect]
     Dosage: 25 mg, daily
  7. LEPTICUR [Suspect]
     Dates: end: 201107
  8. LEPTICUR [Suspect]
     Dosage: 10 mg, daily
  9. HALDOL [Suspect]
     Dates: end: 201107
  10. HALDOL [Suspect]
     Dosage: 5 mg, three times daily
  11. RISPERDAL [Suspect]
     Dates: end: 201107
  12. RISPERDAL [Suspect]
     Dosage: 4 mg, daily
  13. TERCIAN [Suspect]
     Dates: end: 201107

REACTIONS (14)
  - Colitis ischaemic [Recovered/Resolved with Sequelae]
  - Colonic obstruction [Recovered/Resolved with Sequelae]
  - Abdominal distension [Unknown]
  - Abdominal pain [Unknown]
  - Vomiting [Unknown]
  - Constipation [Unknown]
  - Oxygen saturation decreased [Recovered/Resolved]
  - Hyperthermia [Recovered/Resolved]
  - Hypotension [Recovered/Resolved]
  - Hyperkalaemia [Unknown]
  - Acidosis [Unknown]
  - Haemodynamic instability [Unknown]
  - Anuria [Unknown]
  - Livedo reticularis [Unknown]
